FAERS Safety Report 5718481-X (Version None)
Quarter: 2008Q2

REPORT INFORMATION
  Report Type: 
  Country: None (occurrence: None)
  Receive Date: 20080425
  Receipt Date: 20080122
  Transmission Date: 20081010
  Serious: Yes (Hospitalization, Other)
  Sender: FDA-Public Use
  Company Number: US-PFIZER INC-2008006429

PATIENT
  Sex: Female
  Weight: 68 kg

DRUGS (1)
  1. BEXTRA [Suspect]
     Indication: INFLAMMATION

REACTIONS (4)
  - HYPERSENSITIVITY [None]
  - INSOMNIA [None]
  - MYOCARDIAL INFARCTION [None]
  - ULCER [None]
